FAERS Safety Report 10588504 (Version 1)
Quarter: 2014Q4

REPORT INFORMATION
  Report Type: Spontaneous
  Country: NO (occurrence: NO)
  Receive Date: 20141117
  Receipt Date: 20141117
  Transmission Date: 20150529
  Serious: Yes (Other)
  Sender: FDA-Public Use
  Company Number: NO-PFIZER INC-2014313623

PATIENT
  Age: 29 Year
  Sex: Female
  Weight: 70 kg

DRUGS (4)
  1. AZITHROMYCIN [Suspect]
     Active Substance: AZITHROMYCIN ANHYDROUS
     Indication: ENCEPHALITIS
  2. AZITHROMYCIN [Suspect]
     Active Substance: AZITHROMYCIN ANHYDROUS
     Indication: MYELITIS
  3. FLAGYL [Suspect]
     Active Substance: METRONIDAZOLE\METRONIDAZOLE HYDROCHLORIDE
     Indication: BORRELIA INFECTION
     Dosage: 400 MG, 1X/DAY
     Dates: start: 20120601, end: 20120605
  4. AZITHROMYCIN [Suspect]
     Active Substance: AZITHROMYCIN ANHYDROUS
     Indication: BORRELIA INFECTION
     Dosage: UNK

REACTIONS (4)
  - Product use issue [Recovered/Resolved with Sequelae]
  - Incorrect drug administration duration [Recovered/Resolved with Sequelae]
  - Insomnia [Recovered/Resolved with Sequelae]
  - Polyneuropathy [Recovered/Resolved with Sequelae]

NARRATIVE: CASE EVENT DATE: 20120602
